FAERS Safety Report 7250721-0 (Version None)
Quarter: 2011Q1

REPORT INFORMATION
  Report Type: 
  Country: None (occurrence: None)
  Receive Date: 20110128
  Receipt Date: 20110121
  Transmission Date: 20110831
  Serious: Yes (Hospitalization)
  Sender: FDA-Public Use
  Company Number: US-JNJFOC-20110106446

PATIENT
  Sex: Female
  Weight: 63.96 kg

DRUGS (1)
  1. INVEGA [Suspect]
     Indication: ADVERSE DRUG REACTION
     Route: 048

REACTIONS (2)
  - DYSPNOEA [None]
  - CHOKING [None]
